FAERS Safety Report 23263411 (Version 1)
Quarter: 2023Q4

REPORT INFORMATION
  Report Type: Spontaneous
  Country: US (occurrence: US)
  Receive Date: 20231205
  Receipt Date: 20231205
  Transmission Date: 20240109
  Serious: Yes (Hospitalization, Other)
  Sender: FDA-Public Use
  Company Number: US-NOVOPROD-1148022

PATIENT
  Age: 46 Year
  Sex: Female

DRUGS (10)
  1. INSULIN ASPART [Suspect]
     Active Substance: INSULIN ASPART
     Indication: Type 1 diabetes mellitus
     Dosage: 20 UNITS PER/MEAL
     Route: 058
  2. INSULIN ASPART [Suspect]
     Active Substance: INSULIN ASPART
     Dosage: 14 UNITS PER/MEAL
     Route: 058
  3. INSULIN ASPART [Suspect]
     Active Substance: INSULIN ASPART
     Dosage: 30 UNITS/HR
     Route: 058
  4. INSULIN ASPART [Suspect]
     Active Substance: INSULIN ASPART
     Dosage: 70 UNITS PER/MEAL
     Route: 058
  5. INSULIN ASPART [Suspect]
     Active Substance: INSULIN ASPART
     Dosage: 40 UNITS EVERY 4-HOURS
     Route: 058
  6. HUMULIN R [Concomitant]
     Active Substance: INSULIN HUMAN
     Indication: Product used for unknown indication
     Dosage: 80 IU, TID
  7. INSULIN DETEMIR [Suspect]
     Active Substance: INSULIN DETEMIR
     Dosage: 40 IU, BID
     Route: 058
  8. INSULIN DETEMIR [Suspect]
     Active Substance: INSULIN DETEMIR
     Indication: Type 1 diabetes mellitus
     Dosage: 32 IU, QD
     Route: 058
  9. INSULIN DETEMIR [Suspect]
     Active Substance: INSULIN DETEMIR
     Dosage: 100 IU, BID
     Route: 058
  10. INSULIN GLARGINE [Concomitant]
     Active Substance: INSULIN GLARGINE
     Indication: Product used for unknown indication
     Dosage: 60 IU, TID

REACTIONS (2)
  - Diabetic ketoacidosis [Recovered/Resolved]
  - Condition aggravated [Recovered/Resolved]
